FAERS Safety Report 6305322-5 (Version None)
Quarter: 2009Q3

REPORT INFORMATION
  Report Type: 
  Country: None (occurrence: None)
  Receive Date: 20090807
  Receipt Date: 20090727
  Transmission Date: 20100115
  Serious: Yes (Hospitalization)
  Sender: FDA-Public Use
  Company Number: 001387

PATIENT
  Sex: Female

DRUGS (1)
  1. NEUPRO [Suspect]

REACTIONS (2)
  - BLISTER [None]
  - DRUG DELIVERY SYSTEM MALFUNCTION [None]
